FAERS Safety Report 6395092-7 (Version None)
Quarter: 2009Q4

REPORT INFORMATION
  Report Type: 
  Country: None (occurrence: None)
  Receive Date: 20091009
  Receipt Date: 20090929
  Transmission Date: 20100525
  Serious: Yes (Death)
  Sender: FDA-Public Use
  Company Number: KR-PFIZER INC-2009267902

PATIENT
  Age: 54 Year

DRUGS (8)
  1. VORICONAZOLE [Suspect]
     Indication: ASPERGILLOSIS
     Dosage: 400 MG, 2X/DAY
     Route: 042
     Dates: start: 20071217, end: 20071217
  2. VORICONAZOLE [Suspect]
     Dosage: 300 MG, 2X/DAY
     Route: 042
     Dates: start: 20071218, end: 20071223
  3. CELECOXIB [Concomitant]
     Indication: PROPHYLAXIS
     Dosage: 200 MG, 1X/DAY
     Route: 048
     Dates: start: 20071207, end: 20071220
  4. GABAPENTIN [Concomitant]
     Indication: PROPHYLAXIS
     Dosage: 200 MG, 3X/DAY
     Route: 048
     Dates: start: 20071212, end: 20071220
  5. AMLODIPINE [Concomitant]
     Indication: HYPERTENSION
     Dosage: 5 MG, 1X/DAY
     Route: 048
     Dates: start: 20071206, end: 20071218
  6. AMBROXOL [Concomitant]
     Indication: RESPIRATORY DISORDER
     Dosage: 15 MG, 3X/DAY
     Route: 042
     Dates: start: 20071212, end: 20071222
  7. TAZOCIN [Concomitant]
     Indication: PROPHYLAXIS
     Dosage: 4.5 G, 3X/DAY
     Route: 042
     Dates: start: 20071213, end: 20071222
  8. VANCOMYCIN [Concomitant]
     Indication: PROPHYLAXIS
     Dosage: 1 G, 2X/DAY
     Route: 042
     Dates: start: 20071213, end: 20071222

REACTIONS (2)
  - CONVULSION [None]
  - HYPERBILIRUBINAEMIA [None]
